FAERS Safety Report 7262672-6 (Version None)
Quarter: 2011Q1

REPORT INFORMATION
  Report Type: 
  Country: None (occurrence: None)
  Receive Date: 20110130
  Receipt Date: 20100923
  Transmission Date: 20110831
  Serious: No
  Sender: FDA-Public Use
  Company Number: US-ABBOTT-10P-163-0673614-00

PATIENT
  Age: 67 Year
  Sex: Male

DRUGS (3)
  1. HUMIRA [Suspect]
     Indication: ANKYLOSING SPONDYLITIS
     Dates: start: 20080101, end: 20100720
  2. METHOTREXATE [Concomitant]
     Indication: PRODUCT USED FOR UNKNOWN INDICATION
  3. HUMIRA [Suspect]
     Dates: start: 20100924

REACTIONS (6)
  - HYPERKERATOSIS [None]
  - LETHARGY [None]
  - PAIN IN EXTREMITY [None]
  - BLISTER [None]
  - ABASIA [None]
  - DRUG INEFFECTIVE [None]
